FAERS Safety Report 25533342 (Version 2)
Quarter: 2025Q3

REPORT INFORMATION
  Report Type: Spontaneous
  Country: EU (occurrence: EU)
  Receive Date: 20250709
  Receipt Date: 20250710
  Transmission Date: 20251020
  Serious: Yes (Life-Threatening, Hospitalization)
  Sender: MYLAN
  Company Number: EU-MYLANLABS-2025M1056716

PATIENT
  Age: 60 Year
  Sex: Male
  Weight: 70 kg

DRUGS (48)
  1. PANTOPRAZOLE [Suspect]
     Active Substance: PANTOPRAZOLE
     Indication: Gastrointestinal disorder
     Dosage: 20 MILLIGRAM, QD
     Dates: start: 20250514, end: 20250515
  2. PANTOPRAZOLE [Suspect]
     Active Substance: PANTOPRAZOLE
     Dosage: 20 MILLIGRAM, QD
     Dates: start: 20250514, end: 20250515
  3. PANTOPRAZOLE [Suspect]
     Active Substance: PANTOPRAZOLE
     Dosage: 20 MILLIGRAM, QD
     Route: 048
     Dates: start: 20250514, end: 20250515
  4. PANTOPRAZOLE [Suspect]
     Active Substance: PANTOPRAZOLE
     Dosage: 20 MILLIGRAM, QD
     Route: 048
     Dates: start: 20250514, end: 20250515
  5. PANTOPRAZOLE [Suspect]
     Active Substance: PANTOPRAZOLE
  6. PANTOPRAZOLE [Suspect]
     Active Substance: PANTOPRAZOLE
  7. PANTOPRAZOLE [Suspect]
     Active Substance: PANTOPRAZOLE
     Route: 065
  8. PANTOPRAZOLE [Suspect]
     Active Substance: PANTOPRAZOLE
     Route: 065
  9. LISINOPRIL [Suspect]
     Active Substance: LISINOPRIL
     Indication: Angina pectoris
     Dosage: 10 MILLIGRAM, QD
     Dates: start: 20220104, end: 20250520
  10. LISINOPRIL [Suspect]
     Active Substance: LISINOPRIL
     Dosage: 10 MILLIGRAM, QD
     Route: 048
     Dates: start: 20220104, end: 20250520
  11. LISINOPRIL [Suspect]
     Active Substance: LISINOPRIL
     Dosage: 10 MILLIGRAM, QD
     Route: 048
     Dates: start: 20220104, end: 20250520
  12. LISINOPRIL [Suspect]
     Active Substance: LISINOPRIL
     Dosage: 10 MILLIGRAM, QD
     Dates: start: 20220104, end: 20250520
  13. NAPROXEN [Suspect]
     Active Substance: NAPROXEN
     Indication: Arthralgia
     Dosage: 1000 MILLIGRAM, BID
     Dates: start: 20250512, end: 20250520
  14. NAPROXEN [Suspect]
     Active Substance: NAPROXEN
     Dosage: 1000 MILLIGRAM, BID
     Route: 048
     Dates: start: 20250512, end: 20250520
  15. NAPROXEN [Suspect]
     Active Substance: NAPROXEN
     Dosage: 1000 MILLIGRAM, BID
     Route: 048
     Dates: start: 20250512, end: 20250520
  16. NAPROXEN [Suspect]
     Active Substance: NAPROXEN
     Dosage: 1000 MILLIGRAM, BID
     Dates: start: 20250512, end: 20250520
  17. FLUCLOXACILLIN [Suspect]
     Active Substance: FLUCLOXACILLIN
     Indication: Staphylococcal bacteraemia
     Dosage: 6000 MILLIGRAM, QD
     Route: 065
     Dates: start: 20250503, end: 20250506
  18. FLUCLOXACILLIN [Suspect]
     Active Substance: FLUCLOXACILLIN
     Dosage: 6000 MILLIGRAM, QD
     Dates: start: 20250503, end: 20250506
  19. FLUCLOXACILLIN [Suspect]
     Active Substance: FLUCLOXACILLIN
     Dosage: 6000 MILLIGRAM, QD
     Dates: start: 20250503, end: 20250506
  20. FLUCLOXACILLIN [Suspect]
     Active Substance: FLUCLOXACILLIN
     Dosage: 6000 MILLIGRAM, QD
     Route: 065
     Dates: start: 20250503, end: 20250506
  21. FLUCLOXACILLIN [Suspect]
     Active Substance: FLUCLOXACILLIN
     Dosage: 12000 MILLIGRAM, QD
     Route: 065
     Dates: start: 20250507, end: 20250513
  22. FLUCLOXACILLIN [Suspect]
     Active Substance: FLUCLOXACILLIN
     Dosage: 12000 MILLIGRAM, QD
     Dates: start: 20250507, end: 20250513
  23. FLUCLOXACILLIN [Suspect]
     Active Substance: FLUCLOXACILLIN
     Dosage: 12000 MILLIGRAM, QD
     Dates: start: 20250507, end: 20250513
  24. FLUCLOXACILLIN [Suspect]
     Active Substance: FLUCLOXACILLIN
     Dosage: 12000 MILLIGRAM, QD
     Route: 065
     Dates: start: 20250507, end: 20250513
  25. FLUCLOXACILLIN [Suspect]
     Active Substance: FLUCLOXACILLIN
     Dosage: 6000 MILLIGRAM, QD
     Route: 065
     Dates: start: 20250514, end: 20250515
  26. FLUCLOXACILLIN [Suspect]
     Active Substance: FLUCLOXACILLIN
     Dosage: 6000 MILLIGRAM, QD
     Route: 065
     Dates: start: 20250514, end: 20250515
  27. FLUCLOXACILLIN [Suspect]
     Active Substance: FLUCLOXACILLIN
     Dosage: 6000 MILLIGRAM, QD
     Dates: start: 20250514, end: 20250515
  28. FLUCLOXACILLIN [Suspect]
     Active Substance: FLUCLOXACILLIN
     Dosage: 6000 MILLIGRAM, QD
     Dates: start: 20250514, end: 20250515
  29. SIMVASTATIN [Concomitant]
     Active Substance: SIMVASTATIN
  30. SIMVASTATIN [Concomitant]
     Active Substance: SIMVASTATIN
     Route: 048
  31. SIMVASTATIN [Concomitant]
     Active Substance: SIMVASTATIN
     Route: 048
  32. SIMVASTATIN [Concomitant]
     Active Substance: SIMVASTATIN
  33. QUETIAPINE [Concomitant]
     Active Substance: QUETIAPINE
  34. QUETIAPINE [Concomitant]
     Active Substance: QUETIAPINE
     Route: 048
  35. QUETIAPINE [Concomitant]
     Active Substance: QUETIAPINE
     Route: 048
  36. QUETIAPINE [Concomitant]
     Active Substance: QUETIAPINE
  37. OLANZAPINE [Concomitant]
     Active Substance: OLANZAPINE
  38. OLANZAPINE [Concomitant]
     Active Substance: OLANZAPINE
     Route: 048
  39. OLANZAPINE [Concomitant]
     Active Substance: OLANZAPINE
     Route: 048
  40. OLANZAPINE [Concomitant]
     Active Substance: OLANZAPINE
  41. METOPROLOL [Concomitant]
     Active Substance: METOPROLOL
  42. METOPROLOL [Concomitant]
     Active Substance: METOPROLOL
     Route: 048
  43. METOPROLOL [Concomitant]
     Active Substance: METOPROLOL
     Route: 048
  44. METOPROLOL [Concomitant]
     Active Substance: METOPROLOL
  45. ASPIRIN [Concomitant]
     Active Substance: ASPIRIN
  46. ASPIRIN [Concomitant]
     Active Substance: ASPIRIN
     Route: 048
  47. ASPIRIN [Concomitant]
     Active Substance: ASPIRIN
     Route: 048
  48. ASPIRIN [Concomitant]
     Active Substance: ASPIRIN

REACTIONS (2)
  - Angioedema [Recovered/Resolved]
  - Cutaneous vasculitis [Recovered/Resolved]

NARRATIVE: CASE EVENT DATE: 20250515
